FAERS Safety Report 9365778 (Version 1)
Quarter: 2013Q2

REPORT INFORMATION
  Report Type: Spontaneous
  Country: US (occurrence: None)
  Receive Date: 20130624
  Receipt Date: 20130624
  Transmission Date: 20140414
  Serious: No
  Sender: FDA-Public Use
  Company Number: None

PATIENT
  Sex: Female

DRUGS (1)
  1. TECFIDERA [Suspect]
     Dosage: 240MG BID ORAL
     Route: 048
     Dates: start: 20130521

REACTIONS (6)
  - Dyspepsia [None]
  - Abdominal discomfort [None]
  - Nausea [None]
  - Pruritus [None]
  - Toothache [None]
  - Gingival pain [None]
